FAERS Safety Report 14603825 (Version 1)
Quarter: 2018Q1

REPORT INFORMATION
  Report Type: Spontaneous
  Country: US (occurrence: US)
  Receive Date: 20180306
  Receipt Date: 20180306
  Transmission Date: 20180509
  Serious: No
  Sender: FDA-Public Use
  Company Number: US-AEGERION PHARMACEUTICAL, INC-AEGR003293

PATIENT
  Age: 50 Year
  Sex: Female

DRUGS (2)
  1. MYALEPT [Suspect]
     Active Substance: METRELEPTIN
     Dosage: 10 MG (DIVIDED INTO 2 INJECTIONS), QD
     Route: 058
     Dates: start: 20170627
  2. MYALEPT [Suspect]
     Active Substance: METRELEPTIN
     Indication: CONGENITAL GENERALISED LIPODYSTROPHY
     Dosage: 10 MG (DIVIDED INTO 2 INJECTIONS), QD
     Route: 058
     Dates: start: 20160523, end: 20170510

REACTIONS (3)
  - Nausea [Unknown]
  - Therapy cessation [Unknown]
  - Abdominal pain [Unknown]

NARRATIVE: CASE EVENT DATE: 20170510
